FAERS Safety Report 26112619 (Version 2)
Quarter: 2025Q4

REPORT INFORMATION
  Report Type: Spontaneous
  Country: US (occurrence: US)
  Receive Date: 20251202
  Receipt Date: 20251222
  Transmission Date: 20260117
  Serious: No
  Sender: BRISTOL-MYERS SQUIBB COMPANY
  Company Number: US-BRISTOL-MYERS SQUIBB COMPANY-2025-154461

PATIENT
  Age: 76 Year
  Sex: Female
  Weight: 90.72 kg

DRUGS (2)
  1. ORENCIA [Suspect]
     Active Substance: ABATACEPT
     Indication: Rheumatoid arthritis
     Route: 058
     Dates: start: 20251030
  2. NUCALA [Concomitant]
     Active Substance: MEPOLIZUMAB
     Indication: Dyspnoea

REACTIONS (3)
  - Device delivery system issue [Unknown]
  - Device safety feature issue [Unknown]
  - No adverse event [Unknown]

NARRATIVE: CASE EVENT DATE: 20251113
